FAERS Safety Report 5762412-3 (Version None)
Quarter: 2008Q2

REPORT INFORMATION
  Report Type: 
  Country: None (occurrence: None)
  Receive Date: 20080609
  Receipt Date: 20080529
  Transmission Date: 20081010
  Serious: Yes (Other)
  Sender: FDA-Public Use
  Company Number: US-AMGEN-QUU254542

PATIENT
  Sex: Female
  Weight: 25 kg

DRUGS (11)
  1. ENBREL [Suspect]
     Indication: JUVENILE ARTHRITIS
     Route: 058
     Dates: start: 20070820, end: 20071106
  2. NABUMETONE [Concomitant]
     Dates: start: 20060925
  3. INFLUENZA VACCINE [Concomitant]
     Dates: start: 20071001
  4. PNEUMOCOCCAL VACCINE [Concomitant]
     Dates: start: 20071001
  5. NASONEX [Concomitant]
  6. PREVACID [Concomitant]
  7. MIRALAX [Concomitant]
  8. CALCIUM [Concomitant]
  9. METHOTREXATE [Concomitant]
     Route: 048
     Dates: start: 20061130
  10. FOLIC ACID [Concomitant]
  11. VITAMIN CAP [Concomitant]

REACTIONS (31)
  - ANOREXIA [None]
  - ANXIETY [None]
  - ARTHRITIS [None]
  - ARTHROPATHY [None]
  - BACTERIAL INFECTION [None]
  - CONSTIPATION [None]
  - DIARRHOEA [None]
  - DIZZINESS [None]
  - FALL [None]
  - FATIGUE [None]
  - GINGIVAL INFECTION [None]
  - GRIP STRENGTH DECREASED [None]
  - HYPERSENSITIVITY [None]
  - INJECTION SITE BRUISING [None]
  - IRRITABILITY [None]
  - JOINT EFFUSION [None]
  - JOINT RANGE OF MOTION DECREASED [None]
  - JOINT SWELLING [None]
  - MUSCULAR WEAKNESS [None]
  - MUSCULOSKELETAL PAIN [None]
  - NASAL CONGESTION [None]
  - NASOPHARYNGITIS [None]
  - NAUSEA [None]
  - PRURITUS [None]
  - PYREXIA [None]
  - RASH [None]
  - SKIN IRRITATION [None]
  - SKIN PAPILLOMA [None]
  - SUICIDAL IDEATION [None]
  - URTICARIA [None]
  - WHITE BLOOD CELL COUNT DECREASED [None]
